FAERS Safety Report 10249474 (Version 1)
Quarter: 2014Q2

REPORT INFORMATION
  Report Type: Spontaneous
  Country: US (occurrence: US)
  Receive Date: 20140620
  Receipt Date: 20140620
  Transmission Date: 20141212
  Serious: Yes (Death, Other)
  Sender: FDA-Public Use
  Company Number: US-MERCK-1406USA009656

PATIENT
  Sex: Male

DRUGS (3)
  1. JANUVIA [Suspect]
     Dosage: UNK
     Route: 048
     Dates: start: 20120511, end: 201212
  2. BYETTA [Suspect]
     Dosage: UNK
     Dates: start: 20111228, end: 201209
  3. VICTOZA [Suspect]
     Dosage: UNK
     Dates: start: 20100922, end: 201208

REACTIONS (1)
  - Pancreatic carcinoma [Fatal]
